FAERS Safety Report 17550849 (Version 1)
Quarter: 2020Q1

REPORT INFORMATION
  Report Type: Spontaneous
  Country: US (occurrence: US)
  Receive Date: 20200309
  Receipt Date: 20200309
  Transmission Date: 20200409
  Serious: Yes (Other)
  Sender: FDA-Public Use
  Company Number: None

PATIENT
  Age: 58 Year
  Sex: Male
  Weight: 69.4 kg

DRUGS (8)
  1. METFORMIN HYDROCHLORIDE TABLETS 1000MG [Suspect]
     Active Substance: METFORMIN HYDROCHLORIDE
     Indication: BLOOD GLUCOSE INCREASED
     Dosage: ?          QUANTITY:1 TABLET DAILY;OTHER FREQUENCY:ONCE, MORNING;?
     Route: 048
     Dates: start: 20170630, end: 20191215
  2. METFORMIN HYDROCHLORIDE TABLETS 1000MG [Suspect]
     Active Substance: METFORMIN HYDROCHLORIDE
     Indication: TYPE 2 DIABETES MELLITUS
     Dosage: ?          QUANTITY:1 TABLET DAILY;OTHER FREQUENCY:ONCE, MORNING;?
     Route: 048
     Dates: start: 20170630, end: 20191215
  3. FARXIGA [Concomitant]
     Active Substance: DAPAGLIFLOZIN PROPANEDIOL
  4. V-E [Concomitant]
  5. INSULIN [Concomitant]
     Active Substance: INSULIN NOS
  6. SIMVASTATIN. [Concomitant]
     Active Substance: SIMVASTATIN
  7. GABAPENTIN. [Concomitant]
     Active Substance: GABAPENTIN
  8. VITAMIN B12 [Concomitant]
     Active Substance: CYANOCOBALAMIN

REACTIONS (3)
  - Malaise [None]
  - Near death experience [None]
  - Weight decreased [None]

NARRATIVE: CASE EVENT DATE: 20170630
